FAERS Safety Report 5297333-6 (Version None)
Quarter: 2007Q2

REPORT INFORMATION
  Report Type: 
  Country: None (occurrence: None)
  Receive Date: 20070409
  Receipt Date: 20070326
  Transmission Date: 20071010
  Serious: Yes (Hospitalization)
  Sender: FDA-Public Use
  Company Number: 070313-0000295

PATIENT
  Age: 35 Year
  Sex: Female

DRUGS (27)
  1. DACTINOMYCIN [Suspect]
     Indication: BENIGN HYDATIDIFORM MOLE
     Dosage: SEE IMAGE
     Route: 042
     Dates: start: 20061218, end: 20061221
  2. DACTINOMYCIN [Suspect]
     Indication: BENIGN HYDATIDIFORM MOLE
     Dosage: SEE IMAGE
     Route: 042
     Dates: start: 20070105, end: 20070108
  3. DACTINOMYCIN [Suspect]
     Indication: BENIGN HYDATIDIFORM MOLE
     Dosage: SEE IMAGE
     Route: 042
     Dates: start: 20070126, end: 20070129
  4. DACTINOMYCIN [Suspect]
     Indication: BENIGN HYDATIDIFORM MOLE
     Dosage: SEE IMAGE
     Route: 042
     Dates: start: 20070218
  5. CYCLOPHOSPHAMIDE [Suspect]
     Indication: BENIGN HYDATIDIFORM MOLE
     Dosage: SEE IMAGE
     Dates: start: 20070126, end: 20070129
  6. CYCLOPHOSPHAMIDE [Suspect]
     Indication: BENIGN HYDATIDIFORM MOLE
     Dosage: SEE IMAGE
     Dates: start: 20070105
  7. CYCLOPHOSPHAMIDE [Suspect]
     Indication: BENIGN HYDATIDIFORM MOLE
     Dosage: SEE IMAGE
     Dates: start: 20070218
  8. DECADRON [Suspect]
     Indication: BENIGN HYDATIDIFORM MOLE
     Dosage: 8 MG; Q3D; PO
     Route: 048
     Dates: start: 20070127, end: 20070129
  9. METHOTREXATE [Suspect]
     Indication: BENIGN HYDATIDIFORM MOLE
     Dosage: SEE IMAGE
     Route: 030
     Dates: start: 20060626, end: 20060629
  10. METHOTREXATE [Suspect]
     Indication: BENIGN HYDATIDIFORM MOLE
     Dosage: SEE IMAGE
     Route: 030
     Dates: start: 20060710, end: 20060713
  11. METHOTREXATE [Suspect]
     Indication: BENIGN HYDATIDIFORM MOLE
     Dosage: SEE IMAGE
     Route: 030
     Dates: start: 20060724, end: 20060727
  12. METHOTREXATE [Suspect]
     Indication: BENIGN HYDATIDIFORM MOLE
     Dosage: SEE IMAGE
     Route: 030
     Dates: start: 20060808, end: 20060811
  13. METHOTREXATE [Suspect]
     Indication: BENIGN HYDATIDIFORM MOLE
     Dosage: SEE IMAGE
     Route: 030
     Dates: start: 20060821, end: 20060825
  14. METHOTREXATE [Suspect]
     Indication: BENIGN HYDATIDIFORM MOLE
     Dosage: SEE IMAGE
     Route: 030
     Dates: start: 20060904, end: 20060908
  15. METHOTREXATE [Suspect]
     Indication: BENIGN HYDATIDIFORM MOLE
     Dosage: SEE IMAGE
     Route: 030
     Dates: start: 20060920, end: 20060924
  16. METHOTREXATE [Suspect]
     Indication: BENIGN HYDATIDIFORM MOLE
     Dosage: SEE IMAGE
     Route: 030
     Dates: start: 20061008, end: 20061012
  17. METHOTREXATE [Suspect]
     Indication: BENIGN HYDATIDIFORM MOLE
     Dosage: SEE IMAGE
     Route: 030
     Dates: start: 20061023, end: 20061027
  18. METHOTREXATE [Suspect]
     Indication: BENIGN HYDATIDIFORM MOLE
     Dosage: SEE IMAGE
     Route: 030
     Dates: start: 20061106, end: 20061110
  19. METHOTREXATE [Suspect]
     Indication: BENIGN HYDATIDIFORM MOLE
     Dosage: SEE IMAGE
     Route: 030
     Dates: start: 20061120, end: 20061124
  20. METHOTREXATE [Suspect]
     Indication: BENIGN HYDATIDIFORM MOLE
     Dosage: SEE IMAGE
     Route: 030
     Dates: start: 20061204, end: 20061208
  21. METHOTREXATE [Suspect]
     Indication: BENIGN HYDATIDIFORM MOLE
     Dosage: SEE IMAGE
     Route: 030
     Dates: start: 20061218, end: 20061221
  22. METHOTREXATE [Suspect]
     Indication: BENIGN HYDATIDIFORM MOLE
     Dosage: SEE IMAGE
     Route: 030
     Dates: start: 20070105, end: 20070108
  23. METHOTREXATE [Suspect]
     Indication: BENIGN HYDATIDIFORM MOLE
     Dosage: SEE IMAGE
     Route: 030
     Dates: start: 20070126, end: 20070129
  24. METHOTREXATE [Suspect]
     Indication: BENIGN HYDATIDIFORM MOLE
     Dosage: SEE IMAGE
     Route: 030
     Dates: start: 20070218
  25. KYTRIL [Concomitant]
  26. MEYLON [Concomitant]
  27. PRIMPERAN INJ [Concomitant]

REACTIONS (9)
  - BLISTER [None]
  - DRUG RESISTANCE [None]
  - ERYTHEMA MULTIFORME [None]
  - HAEMOGLOBIN DECREASED [None]
  - HEPATIC FUNCTION ABNORMAL [None]
  - NAUSEA [None]
  - NEUTROPENIA [None]
  - VOMITING [None]
  - WHITE BLOOD CELL COUNT DECREASED [None]
